FAERS Safety Report 8023186-9 (Version None)
Quarter: 2012Q1

REPORT INFORMATION
  Report Type: 
  Country: None (occurrence: None)
  Receive Date: 20120104
  Receipt Date: 20111225
  Transmission Date: 20120608
  Serious: Yes (Other)
  Sender: FDA-Public Use
  Company Number: US-BAXTER-2011BH040714

PATIENT
  Age: 60 Year
  Sex: Female

DRUGS (8)
  1. METRONIDAZOLE [Suspect]
     Indication: PRODUCT USED FOR UNKNOWN INDICATION
     Route: 042
  2. SENSIPAR [Concomitant]
     Indication: PRODUCT USED FOR UNKNOWN INDICATION
     Route: 065
  3. CIPROFLOXACIN IN DEXTROSE 5% [Suspect]
     Indication: ABSCESS SOFT TISSUE
     Route: 042
  4. FENTANYL CITRATE [Suspect]
     Indication: SEDATION
     Route: 042
  5. METOCLOPRAMIDE HYDROCHLORIDE [Suspect]
     Indication: ANTIEMETIC SUPPORTIVE CARE
     Route: 042
  6. MORPHINE SULFATE [Suspect]
     Indication: PRODUCT USED FOR UNKNOWN INDICATION
     Route: 065
  7. CEFOXITIN [Suspect]
     Indication: ABSCESS SOFT TISSUE
     Route: 042
  8. MIDAZOLAM HYDROCHLORIDE [Suspect]
     Indication: SEDATION
     Route: 042

REACTIONS (2)
  - NEUROTOXICITY [None]
  - CATATONIA [None]
